FAERS Safety Report 9052262 (Version 2)
Quarter: 2013Q1

REPORT INFORMATION
  Report Type: Spontaneous
  Country: US (occurrence: US)
  Receive Date: 20130206
  Receipt Date: 20130227
  Transmission Date: 20140127
  Serious: Yes (Other)
  Sender: FDA-Public Use
  Company Number: PHEH2013US003086

PATIENT
  Sex: Female

DRUGS (9)
  1. GILENYA [Suspect]
     Indication: MULTIPLE SCLEROSIS
     Dosage: 0.5 MG, QD
     Route: 048
     Dates: start: 20121108, end: 201301
  2. BACLOFEN [Concomitant]
     Indication: MUSCLE SPASMS
     Dosage: 10 MG, QID
     Route: 048
  3. PROGESTERONE [Concomitant]
  4. ESTRADIOL [Concomitant]
  5. SYNTHROID [Concomitant]
     Indication: HYPOTHYROIDISM
     Dosage: 100 UG, DAILY
     Route: 048
  6. FOSAMAX [Concomitant]
     Indication: OSTEOPOROSIS
     Dosage: 70 MG, QW
     Route: 048
  7. VITAMIN D3 [Concomitant]
     Indication: SUPPLEMENTATION THERAPY
     Dosage: 2000 IU, DAILY
     Route: 048
  8. PROVERA [Concomitant]
     Indication: HORMONE THERAPY
     Dosage: 2.5 MG, DAILY
     Route: 048
  9. DALFAMPRIDINE [Concomitant]
     Indication: GAIT DISTURBANCE
     Dosage: 5 MG, QID
     Route: 048

REACTIONS (1)
  - Multiple sclerosis [Unknown]
